FAERS Safety Report 9101990 (Version 1)
Quarter: 2013Q1

REPORT INFORMATION
  Report Type: Spontaneous
  Country: GB (occurrence: GB)
  Receive Date: 20130218
  Receipt Date: 20130218
  Transmission Date: 20140127
  Serious: Yes (Life-Threatening, Hospitalization, Other)
  Sender: FDA-Public Use
  Company Number: GB-ASTRAZENECA-2013SE09753

PATIENT
  Age: 54 Year
  Sex: Male
  Weight: 70 kg

DRUGS (4)
  1. TICAGRELOR [Suspect]
     Indication: ACUTE CORONARY SYNDROME
     Route: 048
     Dates: start: 201212, end: 20130125
  2. AMLODIPINE [Concomitant]
  3. ASPIRIN [Concomitant]
  4. PREDNISOLONE [Concomitant]

REACTIONS (3)
  - Acute interstitial pneumonitis [Not Recovered/Not Resolved]
  - Oxygen saturation decreased [Unknown]
  - Pulmonary haemorrhage [Not Recovered/Not Resolved]
